FAERS Safety Report 15105779 (Version 1)
Quarter: 2018Q3

REPORT INFORMATION
  Report Type: Spontaneous
  Country: PL (occurrence: PL)
  Receive Date: 20180704
  Receipt Date: 20180704
  Transmission Date: 20181010
  Serious: Yes (Other)
  Sender: FDA-Public Use
  Company Number: PL-TEVA-2018-PL-915083

PATIENT
  Age: 61 Year
  Sex: Female

DRUGS (3)
  1. CARBOPLATIN. [Suspect]
     Active Substance: CARBOPLATIN
     Indication: OVARIAN CANCER
     Dosage: 6 CYCLES
     Route: 065
  2. PACLITAXEL. [Suspect]
     Active Substance: PACLITAXEL
     Indication: OVARIAN CANCER
     Dosage: 6 CYCLES
     Route: 065
  3. AVASTIN [Suspect]
     Active Substance: BEVACIZUMAB
     Indication: OVARIAN CANCER
     Dosage: 12 CYCLES
     Route: 065
     Dates: start: 20170926

REACTIONS (9)
  - Arthralgia [Unknown]
  - Thrombocytopenia [Unknown]
  - Neutropenia [Unknown]
  - Deep vein thrombosis [Unknown]
  - Thrombosis [Unknown]
  - Pelvic venous thrombosis [Unknown]
  - Nausea [Unknown]
  - Fibrosis [Unknown]
  - Bone pain [Unknown]
